FAERS Safety Report 19056009 (Version 5)
Quarter: 2022Q3

REPORT INFORMATION
  Report Type: Report from Study
  Country: US (occurrence: US)
  Receive Date: 20210324
  Receipt Date: 20220721
  Transmission Date: 20221026
  Serious: Yes (Hospitalization, Other)
  Sender: FDA-Public Use
  Company Number: US-NPS_PHARMACEUTICALS-002050

PATIENT
  Age: 49 Year
  Sex: Female
  Weight: 55 kg

DRUGS (57)
  1. TEDUGLUTIDE [Suspect]
     Active Substance: TEDUGLUTIDE
     Indication: Short-bowel syndrome
     Dosage: 2.8 MILLIGRAM, QD
     Route: 058
     Dates: start: 20131020, end: 20150202
  2. TEDUGLUTIDE [Suspect]
     Active Substance: TEDUGLUTIDE
     Indication: Short-bowel syndrome
     Dosage: 2.8 MILLIGRAM, QD
     Route: 058
     Dates: start: 20131020, end: 20150202
  3. TEDUGLUTIDE [Suspect]
     Active Substance: TEDUGLUTIDE
     Indication: Short-bowel syndrome
     Dosage: 2.8 MILLIGRAM, QD
     Route: 058
     Dates: start: 20131020, end: 20150202
  4. TEDUGLUTIDE [Suspect]
     Active Substance: TEDUGLUTIDE
     Indication: Short-bowel syndrome
     Dosage: 2.8 MILLIGRAM, QD
     Route: 058
     Dates: start: 20131020, end: 20150202
  5. TEDUGLUTIDE [Suspect]
     Active Substance: TEDUGLUTIDE
     Dosage: 2.8 MILLIGRAM, 3/WEEK
     Route: 042
     Dates: start: 20150203, end: 201511
  6. TEDUGLUTIDE [Suspect]
     Active Substance: TEDUGLUTIDE
     Dosage: 2.8 MILLIGRAM, 3/WEEK
     Route: 042
     Dates: start: 20150203, end: 201511
  7. TEDUGLUTIDE [Suspect]
     Active Substance: TEDUGLUTIDE
     Dosage: 2.8 MILLIGRAM, 3/WEEK
     Route: 042
     Dates: start: 20150203, end: 201511
  8. TEDUGLUTIDE [Suspect]
     Active Substance: TEDUGLUTIDE
     Dosage: 2.8 MILLIGRAM, 3/WEEK
     Route: 042
     Dates: start: 20150203, end: 201511
  9. TPN [Concomitant]
     Active Substance: AMINO ACIDS\DEXTROSE\ELECTROLYTES NOS\SOYBEAN OIL
     Indication: Nutritional supplementation
     Dosage: 2 LITER, 2/WEEK
     Route: 065
     Dates: start: 20141231, end: 20150406
  10. TPN [Concomitant]
     Active Substance: AMINO ACIDS\DEXTROSE\ELECTROLYTES NOS\SOYBEAN OIL
     Dosage: 3.9 LITER, 5/WEEK
     Route: 065
     Dates: start: 20150407, end: 20150521
  11. TPN [Concomitant]
     Active Substance: AMINO ACIDS\DEXTROSE\ELECTROLYTES NOS\SOYBEAN OIL
     Dosage: 3.3 LITER, 3/WEEK
     Route: 065
     Dates: start: 20150522, end: 20151006
  12. TPN [Concomitant]
     Active Substance: AMINO ACIDS\DEXTROSE\ELECTROLYTES NOS\SOYBEAN OIL
     Dosage: 1.5 LITER, QD
     Route: 065
     Dates: start: 20150309, end: 20150310
  13. PREVACID [Concomitant]
     Active Substance: LANSOPRAZOLE
     Indication: Gastrooesophageal reflux disease
     Dosage: 30 MILLIGRAM, QD
     Route: 048
     Dates: start: 20130124
  14. KETAMINE HCL 100% [Concomitant]
     Indication: Pain
     Dosage: 100 DOSAGE FORM, QD
     Route: 061
     Dates: start: 20140711
  15. DIETARY SUPPLEMENT\HERBALS\MILK THISTLE [Concomitant]
     Active Substance: DIETARY SUPPLEMENT\HERBALS\MILK THISTLE
     Indication: Phytotherapy
     Dosage: UNK, QD
     Route: 048
     Dates: start: 20140711
  16. VITAMINS [Concomitant]
     Active Substance: VITAMINS
     Indication: Prophylaxis
     Dosage: UNK UNK, QD
     Route: 048
     Dates: start: 20140711
  17. HUMAN IMMUNOGLOBULIN G [Concomitant]
     Active Substance: HUMAN IMMUNOGLOBULIN G
     Indication: Myasthenic syndrome
     Dosage: UNK
     Route: 042
     Dates: start: 20150223, end: 20150615
  18. ACETAMINOPHEN [Concomitant]
     Active Substance: ACETAMINOPHEN
     Indication: Pyrexia
     Dosage: 650 MILLIGRAM
     Route: 048
  19. LOPERAMIDE [Concomitant]
     Active Substance: LOPERAMIDE
     Indication: Product used for unknown indication
     Dosage: 2 MG, 3X/DAY:TID
     Route: 048
     Dates: start: 20150311, end: 20150311
  20. LIDOCAINE [Concomitant]
     Active Substance: LIDOCAINE
     Indication: Hepatic encephalopathy
     Dosage: UNK UNK, QD
     Route: 065
     Dates: start: 20200902, end: 20200902
  21. ASPIRIN [Concomitant]
     Active Substance: ASPIRIN
     Indication: Hepatic encephalopathy
     Dosage: 81 MILLIGRAM
     Route: 048
     Dates: start: 20200902, end: 20200902
  22. LEVETIRACETAM [Concomitant]
     Active Substance: LEVETIRACETAM
     Indication: Hepatic encephalopathy
     Dosage: 750 MILLIGRAM, BID
     Route: 048
     Dates: start: 20200902, end: 20200902
  23. TACROLIMUS [Concomitant]
     Active Substance: TACROLIMUS
     Indication: Hepatic encephalopathy
     Dosage: 2 MILLIGRAM, BID
     Route: 048
     Dates: start: 20200902, end: 20200902
  24. SODIUM PHOSPHATE [Concomitant]
     Active Substance: SODIUM PHOSPHATE
     Indication: Hypervolaemia
     Dosage: UNK UNK, SINGLE
     Route: 042
     Dates: start: 20200724, end: 20200724
  25. DESLORATADINE [Concomitant]
     Active Substance: DESLORATADINE
     Indication: Seasonal allergy
     Dosage: 5 MILLIGRAM, QD
     Route: 048
     Dates: start: 20200303, end: 20200303
  26. DESLORATADINE [Concomitant]
     Active Substance: DESLORATADINE
     Indication: Rhinitis
  27. ALDACTONE [Concomitant]
     Active Substance: SPIRONOLACTONE
  28. BACTRIM DS [Concomitant]
     Active Substance: SULFAMETHOXAZOLE\TRIMETHOPRIM
     Indication: Acute hepatic failure
     Dosage: UNK UNK, BID
     Route: 048
     Dates: start: 20191101, end: 20191110
  29. NARCAN [Concomitant]
     Active Substance: NALOXONE HYDROCHLORIDE
     Indication: Acute hepatic failure
     Dosage: UNK
     Route: 042
     Dates: start: 20191101, end: 20191106
  30. VITAMIN E [Concomitant]
     Active Substance: .ALPHA.-TOCOPHEROL
     Indication: Acute hepatic failure
     Dosage: UNK UNK, QD
     Route: 048
     Dates: start: 20191101, end: 20191106
  31. ACTIGALL [Concomitant]
     Active Substance: URSODIOL
     Indication: Acute hepatic failure
     Dosage: 300 MILLIGRAM, BID
     Route: 048
     Dates: start: 20191101, end: 20191106
  32. ULTRAM [Concomitant]
     Active Substance: TRAMADOL HYDROCHLORIDE
     Indication: Acute hepatic failure
     Dosage: 50 MILLIGRAM, QID
     Route: 048
     Dates: start: 20191101, end: 20191106
  33. PROTONIX [Concomitant]
     Active Substance: PANTOPRAZOLE SODIUM
     Indication: Acute hepatic failure
     Dosage: 20 MILLIGRAM, QD
     Route: 048
     Dates: start: 20191101, end: 20191106
  34. ZOFRAN [Concomitant]
     Active Substance: ONDANSETRON HYDROCHLORIDE
     Indication: Acute hepatic failure
     Dosage: 4 MILLIGRAM, TID
     Route: 048
     Dates: start: 20191101, end: 20191106
  35. LACTULOSE [Concomitant]
     Active Substance: LACTULOSE
     Indication: Acute hepatic failure
     Dosage: UNK, TID
     Route: 042
     Dates: start: 20191101, end: 20191106
  36. MAGNESIUM SULFATE [Concomitant]
     Active Substance: MAGNESIUM SULFATE
     Indication: Hypervolaemia
     Dosage: UNK
     Route: 042
     Dates: start: 20200723, end: 20200723
  37. LASIX [Concomitant]
     Active Substance: FUROSEMIDE
     Indication: Hypervolaemia
     Dosage: 40 MILLIGRAM, BID
     Route: 042
     Dates: start: 20200722, end: 20200725
  38. LEVAQUIN [Concomitant]
     Active Substance: LEVOFLOXACIN
     Indication: Hypervolaemia
     Dosage: 500 MILLIGRAM, QD
     Route: 048
     Dates: start: 20200721, end: 20200725
  39. SUBLIMAZE [Concomitant]
     Active Substance: FENTANYL CITRATE
     Indication: Hypervolaemia
     Dosage: UNK
     Route: 048
     Dates: start: 20200721, end: 20200721
  40. FLAGYL [Concomitant]
     Active Substance: METRONIDAZOLE\METRONIDAZOLE HYDROCHLORIDE
     Indication: Hypervolaemia
     Dosage: 500 MILLIGRAM, TID
     Route: 048
     Dates: start: 20200720, end: 20200723
  41. POTASSIUM PHOSPHATE [Concomitant]
     Active Substance: POTASSIUM PHOSPHATE
     Indication: Hypervolaemia
     Dosage: 500 MILLIGRAM, TID
     Route: 048
     Dates: start: 20200719, end: 20200719
  42. PHYTONADIONE [Concomitant]
     Active Substance: PHYTONADIONE
     Dosage: 10 MILLIGRAM, QD
     Route: 042
     Dates: start: 20200719, end: 20200721
  43. PROAMATINE [Concomitant]
     Active Substance: MIDODRINE HYDROCHLORIDE
     Indication: Hypervolaemia
     Dosage: 5 MILLIGRAM, TID
     Route: 048
     Dates: start: 20200717, end: 20200725
  44. ZYRTEC [Concomitant]
     Active Substance: CETIRIZINE HYDROCHLORIDE
     Indication: Hypervolaemia
     Dosage: 5 MILLIGRAM
     Route: 048
     Dates: start: 20200717, end: 20200725
  45. TYLENOL [Concomitant]
     Active Substance: ACETAMINOPHEN
     Indication: Acute hepatic failure
     Dosage: UNK
     Route: 042
     Dates: start: 20191101, end: 20191106
  46. ZINCATE [Concomitant]
     Indication: Acute hepatic failure
     Dosage: 220 MILLIGRAM, QD
     Route: 048
     Dates: start: 20191101, end: 20191106
  47. XIFAXAN [Concomitant]
     Active Substance: RIFAXIMIN
     Indication: Acute hepatic failure
     Dosage: 550 MILLIGRAM, BID
     Route: 048
     Dates: start: 20191101, end: 20191106
  48. ERTAPENEM [Concomitant]
     Active Substance: ERTAPENEM
     Indication: Vascular device infection
     Route: 042
  49. FLOMAX [Concomitant]
     Active Substance: TAMSULOSIN HYDROCHLORIDE
     Indication: Acute hepatic failure
  50. DULOXETINE [Concomitant]
     Active Substance: DULOXETINE
     Indication: Anxiety
     Dosage: UNK
     Route: 048
  51. LINEZOLID [Concomitant]
     Active Substance: LINEZOLID
     Indication: Sepsis
     Dosage: UNK
     Route: 048
  52. PANTOPRAZOLE [Concomitant]
     Active Substance: PANTOPRAZOLE
     Dosage: 40 MILLIGRAM, QD
     Route: 048
     Dates: start: 20150310, end: 20150803
  53. VANCOMYCIN [Concomitant]
     Active Substance: VANCOMYCIN
     Indication: Sepsis
  54. CIPROFLOXACIN [Concomitant]
     Active Substance: CIPROFLOXACIN
     Indication: Sepsis
     Dosage: 400 MILLIGRAM, BID
     Route: 042
     Dates: start: 20151008, end: 20151010
  55. DRONABINOL [Concomitant]
     Active Substance: DRONABINOL
     Indication: Malnutrition
     Dosage: 5 MILLIGRAM, BID
     Route: 048
     Dates: start: 20151008
  56. CLINDAMYCIN [Concomitant]
     Active Substance: CLINDAMYCIN
     Indication: Vascular device infection
     Dosage: 900 MILLIGRAM, TID
     Route: 042
  57. VITAMIN D3 [Concomitant]
     Active Substance: CHOLECALCIFEROL
     Indication: Vitamin D deficiency
     Dosage: UNK UNK, QD
     Route: 048

REACTIONS (2)
  - Streptococcal infection [Recovered/Resolved]
  - Vascular device infection [Recovered/Resolved]

NARRATIVE: CASE EVENT DATE: 20150309
